FAERS Safety Report 6372953-6 (Version None)
Quarter: 2009Q3

REPORT INFORMATION
  Report Type: 
  Country: None (occurrence: None)
  Receive Date: 20090924
  Receipt Date: 20081217
  Transmission Date: 20100115
  Serious: No
  Sender: FDA-Public Use
  Company Number: US-ASTRAZENECA-2008UW28281

PATIENT
  Age: 48 Year
  Sex: Male

DRUGS (2)
  1. SEROQUEL [Suspect]
     Dosage: 200 MG IN AM, 400 MG AT NIGHT
     Route: 048
  2. LITHIUM [Concomitant]

REACTIONS (1)
  - NIGHT SWEATS [None]
